FAERS Safety Report 11309583 (Version 4)
Quarter: 2015Q3

REPORT INFORMATION
  Report Type: Spontaneous
  Country: FR (occurrence: FR)
  Receive Date: 20150724
  Receipt Date: 20150803
  Transmission Date: 20151125
  Serious: Yes (Hospitalization, Other)
  Sender: FDA-Public Use
  Company Number: FR-009507513-1507FRA011094

PATIENT
  Age: 10 Year
  Sex: Female
  Weight: 28 kg

DRUGS (7)
  1. IFOSFAMIDE. [Suspect]
     Active Substance: IFOSFAMIDE
     Indication: ALVEOLAR RHABDOMYOSARCOMA
     Dosage: TOTAL DAILY DOSE: 3850 MG, DAY 1 AND DAY 2
     Route: 042
     Dates: start: 20150504, end: 20150505
  2. VINCRISTINE SULFATE. [Suspect]
     Active Substance: VINCRISTINE SULFATE
     Indication: ALVEOLAR RHABDOMYOSARCOMA
     Dosage: TOTAL DAILY DOSE: 1.65 MG
     Route: 042
     Dates: start: 20150504, end: 20150504
  3. COSMEGEN [Suspect]
     Active Substance: DACTINOMYCIN
     Indication: ALVEOLAR RHABDOMYOSARCOMA
     Dosage: TOTAL DAILY DOSE: 1200 MICROGRAM, DAY 1
     Route: 042
     Dates: start: 20150504, end: 20150505
  4. DOXORUBICIN [Suspect]
     Active Substance: DOXORUBICIN
     Indication: ALVEOLAR RHABDOMYOSARCOMA
     Dosage: TOTAL DAILY DOSE: 32 MG, DAY 1 AND DAY 2 (DAY 2 ON 07-MAY-2015)
     Route: 042
     Dates: start: 20150504, end: 20150505
  5. DEXAMETHASONE. [Suspect]
     Active Substance: DEXAMETHASONE
     Dosage: TOTAL DAILY DOSE: 5G/M2
     Route: 042
     Dates: start: 20150504, end: 20150505
  6. PLITICAN [Suspect]
     Active Substance: ALIZAPRIDE HYDROCHLORIDE
     Indication: PROPHYLAXIS OF NAUSEA AND VOMITING
     Dosage: TOTAL DAILY DOSE: 80 MG
     Route: 042
     Dates: start: 20150504, end: 20150505
  7. EMEND [Suspect]
     Active Substance: APREPITANT
     Indication: PROPHYLAXIS OF NAUSEA AND VOMITING
     Dosage: UNK
     Route: 048
     Dates: start: 20150504, end: 20150505

REACTIONS (5)
  - Muscle contractions involuntary [Recovered/Resolved]
  - Agitation [Recovered/Resolved]
  - Somnolence [Recovered/Resolved]
  - Encephalopathy [Recovered/Resolved]
  - Altered state of consciousness [Recovered/Resolved]

NARRATIVE: CASE EVENT DATE: 20150505
